FAERS Safety Report 25470711 (Version 5)
Quarter: 2025Q3

REPORT INFORMATION
  Report Type: Spontaneous
  Country: JP (occurrence: JP)
  Receive Date: 20250624
  Receipt Date: 20250903
  Transmission Date: 20251020
  Serious: Yes (Life-Threatening, Hospitalization, Other)
  Sender: ALEXION PHARMACEUTICALS
  Company Number: JP-ASTRAZENECA-250061874_010520_P_1

PATIENT
  Age: 58 Year
  Sex: Female
  Weight: 49 kg

DRUGS (12)
  1. TRUQAP [Suspect]
     Active Substance: CAPIVASERTIB
     Indication: Breast cancer recurrent
     Dosage: AN 4-DAY-ON-FOLLOWED-BY-3-DAY-OFF SCHEDULE
     Dates: start: 20250612, end: 20250615
  2. FULVESTRANT [Suspect]
     Active Substance: FULVESTRANT
     Indication: Breast cancer recurrent
  3. FULVESTRANT [Suspect]
     Active Substance: FULVESTRANT
  4. NOLVADEX [Suspect]
     Active Substance: TAMOXIFEN CITRATE
     Route: 065
  5. FUROSEMIDE [Concomitant]
     Active Substance: FUROSEMIDE
     Dosage: 40 MILLIGRAM, QD
     Dates: start: 20250430, end: 20250718
  6. Heparinoid [Concomitant]
     Dates: start: 20250604, end: 20250612
  7. CARBOHYDRATES\FATTY ACIDS\MINERALS\PROTEIN\VITAMINS [Concomitant]
     Active Substance: CARBOHYDRATES\FATTY ACIDS\MINERALS\PROTEIN\VITAMINS
     Dosage: 250 MILLILITER, QD
     Dates: start: 20250612, end: 20250716
  8. PETROLATUM [Concomitant]
     Active Substance: PETROLATUM
     Dates: start: 20250612, end: 20250619
  9. FELBINAC [Concomitant]
     Active Substance: FELBINAC
     Dates: start: 20250612, end: 20250612
  10. LOXOPROFEN SODIUM [Concomitant]
     Active Substance: LOXOPROFEN SODIUM
     Dosage: 2 DOSAGE FORM, QD
     Dates: start: 20250430, end: 20250618
  11. VONOPRAZAN FUMARATE [Concomitant]
     Active Substance: VONOPRAZAN FUMARATE
     Dosage: 10 MILLIGRAM, QD
     Dates: start: 20250618, end: 20250718
  12. POTASSIUM CHLORIDE [Concomitant]
     Active Substance: POTASSIUM CHLORIDE
     Dosage: 600 MILLIGRAM, TID
     Dates: start: 20250619, end: 20250622

REACTIONS (7)
  - Hyperglycaemia [Recovered/Resolved]
  - Metastases to liver [Unknown]
  - Metastases to bone [Unknown]
  - Femur fracture [Unknown]
  - Jaundice [Unknown]
  - Depressed level of consciousness [Unknown]
  - Keratitis [Unknown]

NARRATIVE: CASE EVENT DATE: 20250618
